FAERS Safety Report 24647950 (Version 1)
Quarter: 2024Q4

REPORT INFORMATION
  Report Type: Spontaneous
  Country: US (occurrence: US)
  Receive Date: 20241121
  Receipt Date: 20241121
  Transmission Date: 20250115
  Serious: Yes (Other)
  Sender: DR REDDYS
  Company Number: None

PATIENT
  Age: 40 Year
  Sex: Male

DRUGS (8)
  1. CLOZAPINE [Suspect]
     Active Substance: CLOZAPINE
     Indication: Schizoaffective disorder bipolar type
     Dosage: INITIATED
  2. CLOZAPINE [Suspect]
     Active Substance: CLOZAPINE
     Indication: Schizophrenia
     Dosage: OVER THE COURSE OF 25 DAYS, CLOZAPINE WAS TITRATED TO 175 MG TWICE PER DAY
  3. VALPROIC ACID [Concomitant]
     Active Substance: VALPROIC ACID
     Indication: Schizoaffective disorder bipolar type
     Dosage: NIGHTLY
  4. VALPROIC ACID [Concomitant]
     Active Substance: VALPROIC ACID
     Indication: Disruptive mood dysregulation disorder
  5. VALPROIC ACID [Concomitant]
     Active Substance: VALPROIC ACID
     Dosage: TITRATED
  6. HALOPERIDOL [Concomitant]
     Active Substance: HALOPERIDOL
     Indication: Schizoaffective disorder bipolar type
  7. BENZTROPINE [Concomitant]
     Active Substance: BENZTROPINE
     Indication: Schizoaffective disorder bipolar type
  8. LITHIUM [Concomitant]
     Active Substance: LITHIUM
     Indication: Schizoaffective disorder bipolar type

REACTIONS (2)
  - Drug-induced liver injury [Recovered/Resolved]
  - Constipation [Unknown]
